FAERS Safety Report 12700396 (Version 1)
Quarter: 2016Q3

REPORT INFORMATION
  Report Type: Spontaneous
  Country: US (occurrence: US)
  Receive Date: 20160830
  Receipt Date: 20160830
  Transmission Date: 20161109
  Serious: No
  Sender: FDA-Public Use
  Company Number: US-SA-2016SA122447

PATIENT
  Age: 57 Year
  Sex: Male
  Weight: 77.56 kg

DRUGS (18)
  1. MONTELUKAST [Concomitant]
     Active Substance: MONTELUKAST SODIUM
     Dates: start: 20160114
  2. EPIPEN [Concomitant]
     Active Substance: EPINEPHRINE
     Indication: ANAPHYLACTIC REACTION
     Dates: start: 20151105
  3. ACETAMINOPHEN. [Concomitant]
     Active Substance: ACETAMINOPHEN
     Indication: PREMEDICATION
     Dates: start: 20151105
  4. AMIODARONE [Concomitant]
     Active Substance: AMIODARONE
     Dates: start: 20160114
  5. CLONAZEPAM. [Concomitant]
     Active Substance: CLONAZEPAM
     Dates: start: 20160114
  6. POTASSIUM [Concomitant]
     Active Substance: POTASSIUM
     Dates: start: 20160114
  7. GABAPENTIN. [Concomitant]
     Active Substance: GABAPENTIN
     Dates: start: 20160114
  8. NORMAL SALINE [Concomitant]
     Active Substance: SODIUM CHLORIDE
     Indication: FLUSHING
     Dates: start: 20151105
  9. ADVAIR HFA [Concomitant]
     Active Substance: FLUTICASONE PROPIONATE\SALMETEROL XINAFOATE
     Dates: start: 20160114
  10. ELIQUIS [Concomitant]
     Active Substance: APIXABAN
     Dates: start: 20160114
  11. FABRAZYME [Suspect]
     Active Substance: AGALSIDASE BETA
     Indication: FABRY^S DISEASE
     Route: 042
  12. FABRAZYME [Suspect]
     Active Substance: AGALSIDASE BETA
     Indication: FABRY^S DISEASE
     Route: 042
  13. DIPHENHYDRAMINE. [Concomitant]
     Active Substance: DIPHENHYDRAMINE
     Indication: PREMEDICATION
     Dates: start: 20151105
  14. CALCIUM [Concomitant]
     Active Substance: CALCIUM
     Dates: start: 20160114
  15. METOPROLOL. [Concomitant]
     Active Substance: METOPROLOL
     Dates: start: 20160114
  16. TACROLIMUS. [Concomitant]
     Active Substance: TACROLIMUS
     Dates: start: 20160114
  17. MYCOPHENOLATE MOFETIL. [Concomitant]
     Active Substance: MYCOPHENOLATE MOFETIL
     Dates: start: 20160114
  18. MINERALS NOS/VITAMINS NOS [Concomitant]
     Dates: start: 20160114

REACTIONS (1)
  - Peripheral swelling [Not Recovered/Not Resolved]

NARRATIVE: CASE EVENT DATE: 201606
